FAERS Safety Report 4875409-2 (Version None)
Quarter: 2006Q1

REPORT INFORMATION
  Report Type: 
  Country: None (occurrence: None)
  Receive Date: 20060109
  Receipt Date: 20050624
  Transmission Date: 20060701
  Serious: No
  Sender: FDA-Public Use
  Company Number: PHNU2005DE02384

PATIENT
  Age: 63 Year
  Sex: Male

DRUGS (8)
  1. EXELON [Suspect]
     Indication: DEMENTIA ALZHEIMER'S TYPE
     Dosage: 1.5 MG, QD
     Route: 048
     Dates: start: 20050411, end: 20050414
  2. MIRTAZAPINE [Suspect]
     Dosage: 45 MG/DAY
     Route: 048
     Dates: start: 20050401
  3. MIRTAZAPINE [Suspect]
     Dosage: 30 MG/DAY
     Route: 048
     Dates: start: 20050318, end: 20050331
  4. FOLIC ACID [Concomitant]
     Dosage: 5 MG/DAY
     Route: 048
     Dates: start: 20050325
  5. GODAMED [Concomitant]
     Indication: THROMBOSIS PROPHYLAXIS
     Dosage: 100 MG/DAY
     Route: 048
  6. DELIX [Suspect]
     Indication: CORONARY ARTERY DISEASE
     Dosage: 2.5 MG/DAY
     Route: 048
  7. SORTIS [Concomitant]
     Dosage: 20 MG/DAY
     Route: 048
  8. VOLTAREN [Concomitant]
     Dosage: 75 MG/DAY
     Route: 048
     Dates: start: 20050329

REACTIONS (4)
  - DIZZINESS [None]
  - DRUG INTERACTION [None]
  - MALAISE [None]
  - VISUAL DISTURBANCE [None]
